FAERS Safety Report 5468558-1 (Version None)
Quarter: 2007Q3

REPORT INFORMATION
  Report Type: 
  Country: None (occurrence: None)
  Receive Date: 20070926
  Receipt Date: 20070925
  Transmission Date: 20080115
  Serious: Yes (Hospitalization)
  Sender: FDA-Public Use
  Company Number: FR-BRISTOL-MYERS SQUIBB COMPANY-13919121

PATIENT
  Age: 59 Year
  Sex: Male

DRUGS (5)
  1. ELISOR [Suspect]
     Indication: HYPERCHOLESTEROLAEMIA
     Route: 048
  2. ALDACTONE [Suspect]
     Indication: CARDIAC FAILURE
     Route: 048
  3. PREVISCAN [Suspect]
     Indication: THROMBOSIS
     Route: 048
     Dates: end: 20061013
  4. TRIATEC [Suspect]
     Indication: HYPERTENSION
     Route: 048
  5. LASIX [Suspect]
     Indication: CARDIAC FAILURE
     Route: 048

REACTIONS (1)
  - RECTAL HAEMORRHAGE [None]
